FAERS Safety Report 13502376 (Version 4)
Quarter: 2017Q2

REPORT INFORMATION
  Report Type: Report from Study
  Country: US (occurrence: US)
  Receive Date: 20170502
  Receipt Date: 20170529
  Transmission Date: 20170830
  Serious: Yes (Death, Hospitalization, Other)
  Sender: FDA-Public Use
  Company Number: US-ALEXION-A201704353

PATIENT
  Sex: Male

DRUGS (1)
  1. SOLIRIS [Suspect]
     Active Substance: ECULIZUMAB
     Indication: HAEMOLYTIC URAEMIC SYNDROME
     Dosage: 1200 MG, UNK
     Route: 042

REACTIONS (8)
  - Cerebrovascular accident [Fatal]
  - Blood pressure increased [Unknown]
  - Penile necrosis [Unknown]
  - Unresponsive to stimuli [Unknown]
  - Carotid artery thrombosis [Unknown]
  - Calciphylaxis [Unknown]
  - Impaired healing [Unknown]
  - Lethargy [Unknown]
